FAERS Safety Report 6451234-6 (Version None)
Quarter: 2009Q4

REPORT INFORMATION
  Report Type: 
  Country: None (occurrence: None)
  Receive Date: 20091123
  Receipt Date: 20091119
  Transmission Date: 20100525
  Serious: Yes (Death, Hospitalization)
  Sender: FDA-Public Use
  Company Number: GR-WYE-G04854309

PATIENT
  Age: 83 Year
  Sex: Male

DRUGS (4)
  1. TYGACIL [Suspect]
     Indication: GANGRENE
     Route: 042
     Dates: start: 20091101, end: 20091106
  2. FLAGYL [Concomitant]
     Dosage: UNSPECIFIED
     Route: 042
     Dates: start: 20091101
  3. HEPARIN [Suspect]
     Dosage: UNSPECIFIED
     Route: 058
     Dates: start: 20091101, end: 20091106
  4. CIPROXIN [Concomitant]
     Indication: GANGRENE
     Dosage: UNSPECIFIED
     Route: 042
     Dates: start: 20091101

REACTIONS (2)
  - CARDIAC ARREST [None]
  - PLATELET COUNT DECREASED [None]
